FAERS Safety Report 13264463 (Version 1)
Quarter: 2017Q1

REPORT INFORMATION
  Report Type: Report from Study
  Country: US (occurrence: US)
  Receive Date: 20170223
  Receipt Date: 20170223
  Transmission Date: 20170428
  Serious: Yes (Hospitalization, Other)
  Sender: FDA-Public Use
  Company Number: US-AMGEN-USASL2017025717

PATIENT
  Age: 77 Year
  Sex: Male

DRUGS (1)
  1. REPATHA [Suspect]
     Active Substance: EVOLOCUMAB
     Indication: HYPERCHOLESTEROLAEMIA
     Dosage: UNK UNK, UNK
     Route: 065

REACTIONS (6)
  - Arthralgia [Unknown]
  - Vascular occlusion [Unknown]
  - Musculoskeletal disorder [Unknown]
  - Erythema [Unknown]
  - Ulcer haemorrhage [Unknown]
  - Joint swelling [Unknown]
